FAERS Safety Report 4265840-0 (Version None)
Quarter: 2004Q1

REPORT INFORMATION
  Report Type: 
  Country: None (occurrence: None)
  Receive Date: 20040107
  Receipt Date: 20040105
  Transmission Date: 20041129
  Serious: Yes (Hospitalization)
  Sender: FDA-Public Use
  Company Number: PHBS2004JP00448

PATIENT
  Age: 68 Year
  Sex: Female

DRUGS (5)
  1. FASTIC #AJ [Suspect]
     Indication: DIABETES MELLITUS
     Dosage: 270 MG/DAY
     Route: 048
     Dates: start: 20031201, end: 20031222
  2. SIGMART [Concomitant]
     Indication: ANGINA PECTORIS
     Dosage: 15 MG, UNK
     Dates: end: 20031222
  3. NEUROTROPIN [Concomitant]
     Indication: BACK PAIN
     Dosage: 3 IU, UNK
     Dates: end: 20031222
  4. SHIKICHOL [Concomitant]
     Indication: HYPERTRIGLYCERIDAEMIA
     Dosage: 300 MG, UNK
     Dates: end: 20031222
  5. BUFFERIN [Concomitant]
     Indication: ANGINA PECTORIS
     Dosage: 81 MG, UNK
     Dates: end: 20031222

REACTIONS (7)
  - ALANINE AMINOTRANSFERASE INCREASED [None]
  - ASPARTATE AMINOTRANSFERASE INCREASED [None]
  - BLOOD BILIRUBIN INCREASED [None]
  - CHROMATURIA [None]
  - GAMMA-GLUTAMYLTRANSFERASE INCREASED [None]
  - HEPATIC FUNCTION ABNORMAL [None]
  - MALAISE [None]
